FAERS Safety Report 22375320 (Version 1)
Quarter: 2023Q2

REPORT INFORMATION
  Report Type: Spontaneous
  Country: US (occurrence: US)
  Receive Date: 20230527
  Receipt Date: 20230527
  Transmission Date: 20230722
  Serious: No
  Sender: FDA-Public Use
  Company Number: US-PERRIGO-22US011273

PATIENT
  Age: 0 Year
  Sex: Male
  Weight: 86.168 kg

DRUGS (2)
  1. MINOXIDIL [Suspect]
     Active Substance: MINOXIDIL
     Indication: Alopecia
     Dosage: UNK, BID
     Route: 061
     Dates: start: 20220809, end: 20220811
  2. FINASTERIDE [Concomitant]
     Active Substance: FINASTERIDE
     Indication: Alopecia
     Dosage: UNK
     Route: 065
     Dates: start: 20220727, end: 20220811

REACTIONS (2)
  - Pruritus [Recovering/Resolving]
  - Application site papules [Recovering/Resolving]

NARRATIVE: CASE EVENT DATE: 20220810
